FAERS Safety Report 18173273 (Version 5)
Quarter: 2021Q4

REPORT INFORMATION
  Report Type: Report from Study
  Country: US (occurrence: US)
  Receive Date: 20200820
  Receipt Date: 20211116
  Transmission Date: 20220303
  Serious: Yes (Hospitalization, Other)
  Sender: FDA-Public Use
  Company Number: US-ABBVIE-19K-163-3208561-00

PATIENT
  Sex: Male

DRUGS (6)
  1. VENCLEXTA [Suspect]
     Active Substance: VENETOCLAX
     Indication: Myelodysplastic syndrome
     Route: 048
  2. VENCLEXTA [Suspect]
     Active Substance: VENETOCLAX
     Route: 048
  3. VENCLEXTA [Suspect]
     Active Substance: VENETOCLAX
     Route: 048
  4. VENCLEXTA [Suspect]
     Active Substance: VENETOCLAX
     Dosage: TAKE ONE 50MG TABLET AND TWO 10MG TABLETS BY MOUTH ON DAYS 1-7 OF 42 DAY CYCLE
     Route: 048
  5. VENCLEXTA [Suspect]
     Active Substance: VENETOCLAX
     Dosage: TAKE TWO 10MG TABLETS AND ONE 50MG TABLET BY MOUTH ON DAYS 1-7 OF 42 DAY CYCLE
     Route: 048
  6. NOXAFIL [Concomitant]
     Active Substance: POSACONAZOLE
     Indication: Product used for unknown indication

REACTIONS (4)
  - Brain neoplasm malignant [Unknown]
  - Hospitalisation [Recovered/Resolved]
  - Off label use [Unknown]
  - Memory impairment [Not Recovered/Not Resolved]

NARRATIVE: CASE EVENT DATE: 20190101
